FAERS Safety Report 8347589-8 (Version None)
Quarter: 2012Q2

REPORT INFORMATION
  Report Type: 
  Country: None (occurrence: None)
  Receive Date: 20120509
  Receipt Date: 20120425
  Transmission Date: 20120825
  Serious: Yes (Other)
  Sender: FDA-Public Use
  Company Number: DK-AMGEN-DNKCT2012009967

PATIENT
  Age: 45 Year
  Sex: Male

DRUGS (6)
  1. RIFAMPIN [Concomitant]
     Dosage: UNK
  2. MYAMBUTOL [Concomitant]
     Dosage: UNK
  3. PYRIDOXINE HCL [Concomitant]
     Dosage: UNK
  4. ISONIAZID [Concomitant]
     Dosage: UNK
  5. ETANERCEPT [Suspect]
     Indication: ANKYLOSING SPONDYLITIS
     Dosage: LATEST TREATMENT: 27JAN2012
     Dates: start: 20120127, end: 20120127
  6. ETANERCEPT [Suspect]
     Indication: PRODUCT USED FOR UNKNOWN INDICATION

REACTIONS (2)
  - INJECTION SITE URTICARIA [None]
  - GENERALISED ERYTHEMA [None]
